FAERS Safety Report 21238649 (Version 1)
Quarter: 2022Q3

REPORT INFORMATION
  Report Type: Spontaneous
  Country: US (occurrence: US)
  Receive Date: 20220822
  Receipt Date: 20220822
  Transmission Date: 20221026
  Serious: No
  Sender: FDA-Public Use
  Company Number: US-SA-SAC20220819000326

PATIENT
  Age: 27 Year
  Sex: Male

DRUGS (6)
  1. DUPIXENT [Suspect]
     Active Substance: DUPILUMAB
     Indication: Nasal polyps
     Dosage: 300 MG, QOW
     Route: 058
     Dates: start: 20220808
  2. BUDESONIDE [Concomitant]
     Active Substance: BUDESONIDE
  3. ZYRTEC [Concomitant]
     Active Substance: CETIRIZINE HYDROCHLORIDE
  4. VITAMIN D NOS [Concomitant]
     Active Substance: VITAMIN D NOS
     Dosage: VITAMIN D-400 10 MCG
  5. VITAMINS NOS [Concomitant]
     Active Substance: VITAMINS
  6. TESTOSTERONE ENANTHATE [Concomitant]
     Active Substance: TESTOSTERONE ENANTHATE

REACTIONS (7)
  - Eye pruritus [Recovered/Resolved]
  - Rhinorrhoea [Not Recovered/Not Resolved]
  - Sinus pain [Not Recovered/Not Resolved]
  - Pain in jaw [Not Recovered/Not Resolved]
  - Toothache [Not Recovered/Not Resolved]
  - Pain [Unknown]
  - Product use in unapproved indication [Unknown]

NARRATIVE: CASE EVENT DATE: 20220801
